FAERS Safety Report 25456553 (Version 1)
Quarter: 2025Q2

REPORT INFORMATION
  Report Type: Report from Study
  Country: DE (occurrence: DE)
  Receive Date: 20250619
  Receipt Date: 20250619
  Transmission Date: 20250716
  Serious: Yes (Other)
  Sender: UCB
  Company Number: DE-UCBSA-2025036381

PATIENT
  Sex: Female

DRUGS (1)
  1. FENFLURAMINE HYDROCHLORIDE [Suspect]
     Active Substance: FENFLURAMINE HYDROCHLORIDE
     Indication: Severe myoclonic epilepsy of infancy

REACTIONS (6)
  - Seizure [Unknown]
  - Malaise [Unknown]
  - Ataxia [Unknown]
  - Decreased appetite [Unknown]
  - Fatigue [Unknown]
  - Therapeutic product effect incomplete [Unknown]
